FAERS Safety Report 5549473-1 (Version None)
Quarter: 2007Q4

REPORT INFORMATION
  Report Type: 
  Country: None (occurrence: None)
  Receive Date: 20071212
  Receipt Date: 20071203
  Transmission Date: 20080405
  Serious: Yes (Other)
  Sender: FDA-Public Use
  Company Number: PHBS2007BR20316

PATIENT
  Age: 61 Year
  Sex: Male
  Weight: 74 kg

DRUGS (7)
  1. EXELON [Suspect]
     Indication: DEMENTIA ALZHEIMER'S TYPE
     Dosage: UNK, UNK
     Route: 048
     Dates: start: 20020101
  2. EXELON [Suspect]
     Dosage: 6 MG, BID
     Route: 048
  3. MEMANTINE HCL [Concomitant]
     Indication: DEMENTIA ALZHEIMER'S TYPE
     Route: 048
  4. METFORMIN HCL [Concomitant]
     Indication: DIABETES MELLITUS
     Dosage: 500 MG/D
     Route: 048
     Dates: start: 20070901
  5. DOXAZOSIN MESYLATE [Concomitant]
     Indication: BENIGN PROSTATIC HYPERPLASIA
     Dosage: 1 DF, Q48H
     Route: 048
  6. FINASTERIDE [Concomitant]
     Indication: BENIGN PROSTATIC HYPERPLASIA
     Dosage: 1 DF, Q48H
     Route: 048
  7. HOMEOPATHIC PREPARATIONS [Concomitant]

REACTIONS (5)
  - ABDOMINAL PAIN [None]
  - HELICOBACTER GASTRITIS [None]
  - INFLUENZA [None]
  - UNEVALUABLE EVENT [None]
  - WEIGHT DECREASED [None]
